FAERS Safety Report 10050010 (Version 1)
Quarter: 2014Q2

REPORT INFORMATION
  Report Type: Spontaneous
  Country: GB (occurrence: GB)
  Receive Date: 20140401
  Receipt Date: 20140401
  Transmission Date: 20141212
  Serious: Yes (Life-Threatening, Disabling)
  Sender: FDA-Public Use
  Company Number: GB-BANPHARM-20142448

PATIENT
  Age: 45 Year
  Sex: Female
  Weight: 69.6 kg

DRUGS (5)
  1. IBUPROFEN UNKNOWN PRODUCT [Suspect]
     Dates: start: 20140305
  2. AMLODIPINE [Concomitant]
     Dates: start: 20140221
  3. CERELLE [Concomitant]
     Dates: start: 20140203, end: 20140204
  4. MOMETASONE [Concomitant]
     Dates: start: 20131129, end: 20131227
  5. PREDNISOLONE [Concomitant]
     Dates: start: 20131129

REACTIONS (1)
  - Anaphylactic reaction [Recovered/Resolved]
